FAERS Safety Report 7935683-2 (Version None)
Quarter: 2011Q4

REPORT INFORMATION
  Report Type: 
  Country: None (occurrence: None)
  Receive Date: 20111121
  Receipt Date: 20111107
  Transmission Date: 20120403
  Serious: Yes (Death)
  Sender: FDA-Public Use
  Company Number: 2011P1010184

PATIENT
  Sex: Female

DRUGS (1)
  1. HEPARIN [Suspect]
     Indication: RENAL FAILURE ACUTE
     Dates: start: 20090101, end: 20090101

REACTIONS (4)
  - SEPSIS [None]
  - RESPIRATORY FAILURE [None]
  - PULMONARY EMBOLISM [None]
  - PRODUCT QUALITY ISSUE [None]
